FAERS Safety Report 10251898 (Version 1)
Quarter: 2014Q2

REPORT INFORMATION
  Report Type: Spontaneous
  Country: US (occurrence: None)
  Receive Date: 20140619
  Receipt Date: 20140619
  Transmission Date: 20141212
  Serious: Yes (Other)
  Sender: FDA-Public Use
  Company Number: 2014SA071808

PATIENT
  Sex: Male

DRUGS (2)
  1. LANTUS [Suspect]
     Indication: DIABETES MELLITUS
     Dosage: UNKNOWN DOSE, FREQ AND THERAPY DATES
  2. LYRICA [Concomitant]

REACTIONS (6)
  - Road traffic accident [None]
  - Spinal cord injury cervical [None]
  - Hypoaesthesia [None]
  - Asthenia [None]
  - Drug hypersensitivity [None]
  - Dizziness [None]
